FAERS Safety Report 5684316-7 (Version None)
Quarter: 2008Q1

REPORT INFORMATION
  Report Type: 
  Country: None (occurrence: None)
  Receive Date: 20080328
  Receipt Date: 20080320
  Transmission Date: 20080703
  Serious: Yes (Other)
  Sender: FDA-Public Use
  Company Number: A0708679A

PATIENT
  Age: 36 Year
  Sex: Female
  Weight: 54.5 kg

DRUGS (1)
  1. LAMICTAL [Suspect]
     Indication: BIPOLAR DISORDER
     Route: 048
     Dates: start: 20080101, end: 20080203

REACTIONS (5)
  - ASTHENIA [None]
  - DIZZINESS [None]
  - MALAISE [None]
  - PYREXIA [None]
  - RASH [None]
